FAERS Safety Report 9366663 (Version 2)
Quarter: 2013Q2

REPORT INFORMATION
  Report Type: Spontaneous
  Country: BR (occurrence: BR)
  Receive Date: 20130625
  Receipt Date: 20130627
  Transmission Date: 20140414
  Serious: Yes (Other)
  Sender: FDA-Public Use
  Company Number: BR-PFIZER INC-2013188417

PATIENT
  Age: 9 Decade
  Sex: Female

DRUGS (2)
  1. PRISTIQ [Suspect]
     Indication: DEPRESSION
     Dosage: 100MG DAILY
     Route: 048
     Dates: start: 201303
  2. PRISTIQ [Suspect]
     Indication: ANXIETY

REACTIONS (3)
  - Schizophrenia [Unknown]
  - Parkinsonism [Not Recovered/Not Resolved]
  - Off label use [Not Recovered/Not Resolved]
